FAERS Safety Report 22201703 (Version 1)
Quarter: 2023Q2

REPORT INFORMATION
  Report Type: Other
  Country: JP (occurrence: JP)
  Receive Date: 20230412
  Receipt Date: 20230412
  Transmission Date: 20230721
  Serious: Yes (Other)
  Sender: FDA-Public Use
  Company Number: JP-GEHPL-2023JSU002524AA

PATIENT
  Age: 80 Year
  Sex: Male
  Weight: 65 kg

DRUGS (2)
  1. OMNIPAQUE [Suspect]
     Active Substance: IOHEXOL
     Indication: Computerised tomogram
     Dosage: 91 ML, SINGLE
     Route: 042
     Dates: start: 20230401, end: 20230401
  2. OMNIPAQUE [Suspect]
     Active Substance: IOHEXOL
     Indication: Bladder cancer

REACTIONS (6)
  - Sneezing [Unknown]
  - Pruritus [Recovering/Resolving]
  - Blood pressure decreased [Recovering/Resolving]
  - Radial pulse decreased [Recovering/Resolving]
  - Depressed level of consciousness [Recovering/Resolving]
  - Hypersensitivity [Unknown]

NARRATIVE: CASE EVENT DATE: 20230401
